FAERS Safety Report 4341548-8 (Version None)
Quarter: 2004Q2

REPORT INFORMATION
  Report Type: 
  Country: None (occurrence: None)
  Receive Date: 20040419
  Receipt Date: 20040419
  Transmission Date: 20050107
  Serious: No
  Sender: FDA-Public Use
  Company Number: None

PATIENT
  Age: 51 Year
  Sex: Male
  Weight: 83 kg

DRUGS (1)
  1. XIGRIS [Suspect]
     Indication: SEPSIS
     Dosage: 1982 MCG/HR 96 HR CONT INTRAVENOUS
     Route: 042
     Dates: start: 20040326, end: 20040326

REACTIONS (3)
  - GASTRITIS [None]
  - GASTROINTESTINAL HAEMORRHAGE [None]
  - STRESS SYMPTOMS [None]
